FAERS Safety Report 11755139 (Version 2)
Quarter: 2015Q4

REPORT INFORMATION
  Report Type: Spontaneous
  Country: IT (occurrence: IT)
  Receive Date: 20151119
  Receipt Date: 20151217
  Transmission Date: 20160304
  Serious: Yes (Other)
  Sender: FDA-Public Use
  Company Number: IT-PFIZER INC-2015383156

PATIENT
  Age: 60 Year
  Sex: Female

DRUGS (2)
  1. DELORAZEPAM [Concomitant]
     Active Substance: DELORAZEPAM
     Indication: ANXIETY
     Dosage: 2.5 MG, UNK
     Route: 048
  2. LYRICA [Suspect]
     Active Substance: PREGABALIN
     Indication: LUMBAR HERNIA
     Dosage: 75 MG, DAILY
     Route: 048
     Dates: start: 20150703, end: 20150716

REACTIONS (8)
  - Head discomfort [Recovering/Resolving]
  - Asthenia [Recovering/Resolving]
  - Dizziness [Unknown]
  - Product use issue [Unknown]
  - Vertigo [Recovering/Resolving]
  - Gait disturbance [Recovering/Resolving]
  - Overdose [Unknown]
  - Medication error [Recovering/Resolving]

NARRATIVE: CASE EVENT DATE: 20150703
